FAERS Safety Report 11054308 (Version 2)
Quarter: 2015Q2

REPORT INFORMATION
  Report Type: Spontaneous
  Country: US (occurrence: None)
  Receive Date: 20150420
  Receipt Date: 20150619
  Transmission Date: 20150821
  Serious: Yes (Hospitalization)
  Sender: FDA-Public Use
  Company Number: US-001855

PATIENT
  Age: 56 Year
  Sex: Male

DRUGS (5)
  1. XANAX [Concomitant]
     Active Substance: ALPRAZOLAM
  2. ANTITHROMBOTIC AGENTS [Concomitant]
     Active Substance: UNSPECIFIED INGREDIENT
  3. FLOMAX [Concomitant]
     Active Substance: TAMSULOSIN HYDROCHLORIDE
  4. GATTEX [Suspect]
     Active Substance: TEDUGLUTIDE\WATER
     Indication: SHORT-BOWEL SYNDROME
     Dosage: DF
     Route: 058
     Dates: start: 20141028, end: 2015
  5. SOLUTIONS FOR PAREBTERAL NUTRITION [Concomitant]

REACTIONS (10)
  - Urethral stenosis [None]
  - Haemorrhoids [None]
  - Nasopharyngitis [None]
  - Procedural pain [None]
  - Post procedural complication [None]
  - Weight decreased [None]
  - Hernia [None]
  - Urinary retention [None]
  - Weight increased [None]
  - Cyst [None]

NARRATIVE: CASE EVENT DATE: 201503
